FAERS Safety Report 6070943-4 (Version None)
Quarter: 2009Q1

REPORT INFORMATION
  Report Type: 
  Country: None (occurrence: None)
  Receive Date: 20090209
  Receipt Date: 20090202
  Transmission Date: 20090719
  Serious: Yes (Hospitalization, Congenital Anomaly)
  Sender: FDA-Public Use
  Company Number: A0680870A

PATIENT
  Sex: Male

DRUGS (5)
  1. PAXIL [Suspect]
     Indication: DEPRESSION
     Dosage: 30MG UNKNOWN
     Dates: start: 19980825, end: 20060101
  2. PAROXETINE HCL [Suspect]
     Indication: DEPRESSION
     Dates: start: 20040503, end: 20051030
  3. EXTRA STRENGTH TYLENOL [Concomitant]
  4. PHENERGAN HCL [Concomitant]
  5. VITAMIN TAB [Concomitant]

REACTIONS (9)
  - ATRIAL SEPTAL DEFECT [None]
  - CARDIAC MURMUR [None]
  - DRUG EXPOSURE DURING PREGNANCY [None]
  - LUNG DISORDER [None]
  - PATENT DUCTUS ARTERIOSUS [None]
  - PERIVENTRICULAR LEUKOMALACIA [None]
  - PULMONARY VALVE STENOSIS [None]
  - RESPIRATORY FAILURE [None]
  - VENTRICULAR HYPERTROPHY [None]
